FAERS Safety Report 8887715 (Version 2)
Quarter: 2012Q4

REPORT INFORMATION
  Report Type: 
  Country: PT (occurrence: PT)
  Receive Date: 20121106
  Receipt Date: 20121115
  Transmission Date: 20130627
  Serious: Yes (Hospitalization)
  Sender: FDA-Public Use
  Company Number: PT-ABBOTT-12P-130-1002674-00

PATIENT
  Age: 35 Year
  Sex: Male

DRUGS (2)
  1. KLACID [Suspect]
     Indication: TOOTHACHE
     Route: 048
     Dates: start: 20120806
  2. BRUFEN [Concomitant]
     Indication: TOOTHACHE
     Route: 048
     Dates: start: 201207

REACTIONS (24)
  - Vasculitis [Recovering/Resolving]
  - Drug hypersensitivity [Recovering/Resolving]
  - Rash [Recovering/Resolving]
  - Malaise [Unknown]
  - Chills [Unknown]
  - Pyrexia [Recovered/Resolved]
  - Rash macular [Unknown]
  - Hypotension [Unknown]
  - Petechiae [Recovering/Resolving]
  - Leukocytosis [Recovering/Resolving]
  - Thrombocytopenia [Recovering/Resolving]
  - Renal failure acute [Recovered/Resolved]
  - Hypoglycaemia [Recovering/Resolving]
  - Fibrin D dimer increased [Recovering/Resolving]
  - Drug eruption [Recovering/Resolving]
  - Systemic inflammatory response syndrome [Unknown]
  - Blood disorder [Recovered/Resolved]
  - Hepatic function abnormal [Unknown]
  - Cell death [Unknown]
  - Cholestasis [Unknown]
  - Rhabdomyolysis [Unknown]
  - Tricuspid valve incompetence [Unknown]
  - Mitral valve incompetence [Unknown]
  - Sinus bradycardia [Unknown]
